FAERS Safety Report 9782854 (Version 1)
Quarter: 2013Q4

REPORT INFORMATION
  Report Type: Spontaneous
  Country: US (occurrence: US)
  Receive Date: 20131226
  Receipt Date: 20131226
  Transmission Date: 20140711
  Serious: No
  Sender: FDA-Public Use
  Company Number: US-ABBVIE-13P-163-1154612-00

PATIENT
  Age: 73 Year
  Sex: Male
  Weight: 104.42 kg

DRUGS (2)
  1. LUPRON DEPOT [Suspect]
     Indication: PROSTATE CANCER
     Route: 030
     Dates: start: 201209, end: 201210
  2. LUPRON DEPOT [Suspect]
     Route: 030

REACTIONS (2)
  - Rash pruritic [Recovered/Resolved]
  - Skin wound [Recovering/Resolving]
